FAERS Safety Report 22522510 (Version 1)
Quarter: 2023Q2

REPORT INFORMATION
  Report Type: Report from Study
  Country: IN (occurrence: IN)
  Receive Date: 20230605
  Receipt Date: 20230605
  Transmission Date: 20230721
  Serious: Yes (Death)
  Sender: FDA-Public Use
  Company Number: IN-002147023-NVSC2023IN126781

PATIENT
  Age: 58 Year
  Sex: Female

DRUGS (1)
  1. ALPELISIB [Suspect]
     Active Substance: ALPELISIB
     Indication: Breast cancer metastatic
     Dosage: 150 MG, QD
     Route: 048
     Dates: start: 20221214

REACTIONS (1)
  - Death [Fatal]

NARRATIVE: CASE EVENT DATE: 20230401
